FAERS Safety Report 16932430 (Version 1)
Quarter: 2019Q4

REPORT INFORMATION
  Report Type: Spontaneous
  Country: US (occurrence: US)
  Receive Date: 20191017
  Receipt Date: 20191017
  Transmission Date: 20200122
  Serious: No
  Sender: FDA-Public Use
  Company Number: US-ROCHE-2197085

PATIENT
  Age: 3 Year
  Sex: Male

DRUGS (3)
  1. VINBLASTINE [Concomitant]
     Active Substance: VINBLASTINE
  2. PREDNISONE. [Concomitant]
     Active Substance: PREDNISONE
  3. VEMURAFENIB. [Suspect]
     Active Substance: VEMURAFENIB
     Indication: LANGERHANS^ CELL HISTIOCYTOSIS
     Route: 065

REACTIONS (5)
  - Hyperkeratosis [Unknown]
  - Off label use [Unknown]
  - Granulomatous dermatitis [Recovered/Resolved]
  - Photosensitivity reaction [Unknown]
  - Intentional product use issue [Unknown]
